FAERS Safety Report 6160562-3 (Version None)
Quarter: 2009Q2

REPORT INFORMATION
  Report Type: 
  Country: None (occurrence: None)
  Receive Date: 20090415
  Receipt Date: 20090415
  Transmission Date: 20091009
  Serious: Yes (Hospitalization)
  Sender: FDA-Public Use
  Company Number: None

PATIENT
  Age: 79 Year
  Sex: Female
  Weight: 80.8 kg

DRUGS (2)
  1. OXALIPLATIN [Suspect]
     Indication: PANCREATIC CARCINOMA
     Dosage: 153 MG EVERY 15 DAYS IV
     Route: 042
     Dates: start: 20090409, end: 20090411
  2. ORAL CAPECITABINE (+ORAL) 4000MG + 200 MG [Suspect]
     Indication: PANCREATIC CARCINOMA
     Dosage: 4000MG + 200MG 6DOSEQ8HRS+200BID PO
     Route: 048
     Dates: start: 20090409, end: 20090411

REACTIONS (1)
  - CONFUSIONAL STATE [None]
